FAERS Safety Report 20880531 (Version 1)
Quarter: 2022Q2

REPORT INFORMATION
  Report Type: Spontaneous
  Country: FR (occurrence: FR)
  Receive Date: 20220526
  Receipt Date: 20220526
  Transmission Date: 20220720
  Serious: Yes (Other)
  Sender: FDA-Public Use
  Company Number: None

PATIENT
  Age: 55 Year
  Sex: Male
  Weight: 61 kg

DRUGS (2)
  1. KEYTRUDA [Suspect]
     Active Substance: PEMBROLIZUMAB
     Indication: Lung neoplasm malignant
     Dosage: 200 MILLIGRAM, 1 TOTAL (ONCE)
     Route: 042
     Dates: start: 20220422, end: 20220422
  2. BISOPROLOL FUMARATE [Concomitant]
     Active Substance: BISOPROLOL FUMARATE
     Dosage: UNK

REACTIONS (1)
  - Skin reaction [Recovered/Resolved]

NARRATIVE: CASE EVENT DATE: 20220422
